FAERS Safety Report 10417662 (Version 1)
Quarter: 2014Q2

REPORT INFORMATION
  Report Type: Spontaneous
  Country: US (occurrence: None)
  Receive Date: 20140609
  Receipt Date: 20140609
  Transmission Date: 20141212
  Serious: No
  Sender: FDA-Public Use
  Company Number: 2014TUS001357

PATIENT
  Sex: Female

DRUGS (2)
  1. BRINTELLIX [Suspect]
     Indication: MAJOR DEPRESSION
     Route: 048
     Dates: start: 20140110, end: 20140114
  2. DOXEPIN (DOXEPIN) (DOXEPIN) [Concomitant]

REACTIONS (5)
  - Flushing [None]
  - Hyperhidrosis [None]
  - Pruritus generalised [None]
  - Condition aggravated [None]
  - Nausea [None]
